FAERS Safety Report 14935076 (Version 2)
Quarter: 2018Q2

REPORT INFORMATION
  Report Type: Spontaneous
  Country: RU (occurrence: RU)
  Receive Date: 20180524
  Receipt Date: 20180611
  Transmission Date: 20180711
  Serious: Yes (Other)
  Sender: FDA-Public Use
  Company Number: RU-PFIZER INC-2018210144

PATIENT
  Age: 22 Year
  Sex: Female

DRUGS (4)
  1. YAZZ [Concomitant]
     Indication: CONTRACEPTION
     Dosage: UNK
  2. DOSTINEX [Suspect]
     Active Substance: CABERGOLINE
     Indication: MENSTRUAL DISORDER
  3. DOSTINEX [Suspect]
     Active Substance: CABERGOLINE
     Indication: HYPERPROLACTINAEMIA
     Dosage: 0.5 MG, WEEKLY
  4. JEANINE [Concomitant]
     Active Substance: DIENOGEST\ETHINYL ESTRADIOL
     Indication: CONTRACEPTION
     Dosage: UNK

REACTIONS (3)
  - Headache [Unknown]
  - Nausea [Unknown]
  - Haemorrhage [Unknown]
